FAERS Safety Report 10403417 (Version 1)
Quarter: 2014Q3

REPORT INFORMATION
  Report Type: Spontaneous
  Country: CN (occurrence: CN)
  Receive Date: 20140822
  Receipt Date: 20140822
  Transmission Date: 20150326
  Serious: Yes (Death, Other)
  Sender: FDA-Public Use
  Company Number: PHHY2014CN101338

PATIENT
  Age: 22 Year
  Sex: Female

DRUGS (5)
  1. OXYTOCIN. [Suspect]
     Active Substance: OXYTOCIN
  2. ROPIVACAINE [Suspect]
     Active Substance: ROPIVACAINE
  3. LIDOCAINE. [Suspect]
     Active Substance: LIDOCAINE
  4. OXYGEN. [Suspect]
     Active Substance: OXYGEN
  5. HETASTARCH. [Suspect]
     Active Substance: HETASTARCH
     Dosage: 50 ML, PER HOUR
     Route: 042

REACTIONS (6)
  - Pulmonary hypertensive crisis [Fatal]
  - Pulmonary arterial pressure increased [Unknown]
  - Multi-organ failure [Fatal]
  - Hypotension [Unknown]
  - Cardiac arrest [Unknown]
  - Maternal exposure during pregnancy [Unknown]
